FAERS Safety Report 24229635 (Version 2)
Quarter: 2024Q4

REPORT INFORMATION
  Report Type: Spontaneous
  Country: FR (occurrence: FR)
  Receive Date: 20240820
  Receipt Date: 20241005
  Transmission Date: 20250114
  Serious: Yes (Disabling)
  Sender: TEVA
  Company Number: FR-TEVA-VS-3233209

PATIENT
  Age: 24 Year
  Sex: Male

DRUGS (3)
  1. PALIPERIDONE [Suspect]
     Active Substance: PALIPERIDONE
     Indication: Product used for unknown indication
     Route: 065
     Dates: start: 202309
  2. PALIPERIDONE [Suspect]
     Active Substance: PALIPERIDONE
     Route: 065
     Dates: start: 20240810
  3. PALIPERIDONE [Suspect]
     Active Substance: PALIPERIDONE
     Route: 065
     Dates: start: 20240905

REACTIONS (4)
  - Musculoskeletal stiffness [Unknown]
  - Pain in extremity [Recovered/Resolved]
  - Back pain [Recovered/Resolved]
  - Gait inability [Unknown]

NARRATIVE: CASE EVENT DATE: 20240810
